FAERS Safety Report 7801641-1 (Version None)
Quarter: 2011Q4

REPORT INFORMATION
  Report Type: 
  Country: None (occurrence: None)
  Receive Date: 20111005
  Receipt Date: 20110920
  Transmission Date: 20120403
  Serious: Yes (Death, Hospitalization)
  Sender: FDA-Public Use
  Company Number: 2011029742

PATIENT
  Age: 64 Year
  Sex: Male

DRUGS (1)
  1. ZEMAIRA [Suspect]
     Dates: start: 20060101

REACTIONS (2)
  - RESPIRATORY FAILURE [None]
  - DYSPNOEA [None]
